FAERS Safety Report 13414350 (Version 1)
Quarter: 2017Q2

REPORT INFORMATION
  Report Type: Report from Study
  Country: DE (occurrence: DE)
  Receive Date: 20170407
  Receipt Date: 20170407
  Transmission Date: 20170830
  Serious: Yes (Other)
  Sender: FDA-Public Use
  Company Number: DE-PFIZER INC-2017137533

PATIENT

DRUGS (4)
  1. CALCIUM FOLINATE [Suspect]
     Active Substance: LEUCOVORIN CALCIUM
     Indication: COLORECTAL CANCER METASTATIC
     Dosage: 500 MG/M2, CYCLIC (ON DAYS 1, 8, 15, 21, 28, AND 36) (EACH TREATMENT CYCLE WAS 6 WEEKS)
     Route: 042
  2. IRESSA [Suspect]
     Active Substance: GEFITINIB
     Indication: COLORECTAL CANCER METASTATIC
     Dosage: 250 MG, CYCLIC, PER DAY (ON DAYS 1, 8, 15, 21, 28, AND 36) (EACH TREATMENT CYCLE WAS 6 WEEKS)
     Route: 048
  3. IRINOTECAN HYDROCHLORIDE. [Suspect]
     Active Substance: IRINOTECAN HYDROCHLORIDE
     Indication: COLORECTAL CANCER METASTATIC
     Dosage: 60 MG/M2, CYCLIC (ON DAYS 1, 8, 15, 21, 28, AND 36) (EACH TREATMENT CYCLE WAS 6 WEEKS)
     Route: 042
  4. FLUOROURACIL. [Suspect]
     Active Substance: FLUOROURACIL
     Indication: COLORECTAL CANCER METASTATIC
     Dosage: 1600 MG/M2, CYCLIC (ON DAYS 1, 8, 15, 21, 28, AND 36) (EACH TREATMENT CYCLE WAS 6 WEEKS)
     Route: 042

REACTIONS (1)
  - Acute psychosis [Unknown]
